FAERS Safety Report 23874111 (Version 1)
Quarter: 2024Q2

REPORT INFORMATION
  Report Type: Spontaneous
  Country: US (occurrence: US)
  Receive Date: 20240520
  Receipt Date: 20240520
  Transmission Date: 20240715
  Serious: No
  Sender: FDA-Public Use
  Company Number: US-CIPLA LTD.-2024US03397

PATIENT

DRUGS (8)
  1. ALBUTEROL [Suspect]
     Active Substance: ALBUTEROL
     Indication: Gastrooesophageal reflux disease
     Dosage: 180 MCG (2 PUFFS) 4 TIMES A DAY
     Dates: start: 20240329, end: 202404
  2. ALBUTEROL [Suspect]
     Active Substance: ALBUTEROL
     Indication: Bronchostenosis
  3. WARFARIN [Concomitant]
     Active Substance: WARFARIN
     Indication: Thrombosis
     Dosage: 7 AND HALF MG ON MONDAY ONCE A DAY (30 YEARS AGO)
     Route: 065
     Dates: start: 1994
  4. WARFARIN [Concomitant]
     Active Substance: WARFARIN
     Dosage: 5 MG IN REST OF THE WEEK/ONCE A DAY (30 YEARS AGO)
     Route: 065
  5. LISINOPRIL [Concomitant]
     Active Substance: LISINOPRIL
     Indication: Blood pressure abnormal
     Dosage: 40 MG/ONCE IN A DAY (2009-2014) (10-15 YEARS AGO)
     Route: 065
  6. SIMVASTATIN [Concomitant]
     Active Substance: SIMVASTATIN
     Indication: Blood cholesterol increased
     Dosage: 40 MG/ONCE IN A DAY (2004 (ABOUT 20 YEARS AGO, PATIENT WAS NOT SURE))
     Route: 065
  7. LEVOTHYROXINE [Concomitant]
     Active Substance: LEVOTHYROXINE\LEVOTHYROXINE SODIUM
     Indication: Thyroid disorder
     Dosage: 1.50 (PATIENT DID NOT KNOW THE UNIT) / ONCE A DAY (2004-2009 (15-20 YEARS AGO))
     Route: 065
  8. INSULIN NOS [Concomitant]
     Active Substance: INSULIN NOS
     Indication: Type 1 diabetes mellitus
     Dosage: UNK
     Route: 065

REACTIONS (5)
  - Dyspepsia [Unknown]
  - Off label use [Unknown]
  - Device delivery system issue [Unknown]
  - Product taste abnormal [Unknown]
  - Wheezing [Recovered/Resolved]

NARRATIVE: CASE EVENT DATE: 20240101
